FAERS Safety Report 26154506 (Version 1)
Quarter: 2025Q4

REPORT INFORMATION
  Report Type: Spontaneous
  Country: US (occurrence: US)
  Receive Date: 20251215
  Receipt Date: 20251215
  Transmission Date: 20260117
  Serious: Yes (Hospitalization)
  Sender: JOHNSON AND JOHNSON
  Company Number: US-JNJFOC-20251208478

PATIENT
  Age: 67 Year
  Sex: Male

DRUGS (2)
  1. TREMFYA [Suspect]
     Active Substance: GUSELKUMAB
     Indication: Psoriasis
  2. TREMFYA [Suspect]
     Active Substance: GUSELKUMAB
     Indication: Psoriatic arthropathy

REACTIONS (4)
  - Crohn^s disease [Not Recovered/Not Resolved]
  - Peripheral swelling [Unknown]
  - Dysuria [Recovering/Resolving]
  - Genital herpes [Unknown]

NARRATIVE: CASE EVENT DATE: 20251030
